FAERS Safety Report 8332575-4 (Version None)
Quarter: 2012Q2

REPORT INFORMATION
  Report Type: 
  Country: None (occurrence: None)
  Receive Date: 20120503
  Receipt Date: 20120418
  Transmission Date: 20120825
  Serious: Yes (Disabling)
  Sender: FDA-Public Use
  Company Number: CN-JNJFOC-20110700273

PATIENT
  Sex: Male
  Weight: 60 kg

DRUGS (4)
  1. DURAGESIC-100 [Suspect]
     Indication: RADIOTHERAPY
     Route: 062
     Dates: start: 20110628, end: 20110629
  2. DURAGESIC-100 [Suspect]
     Route: 062
  3. DURAGESIC-100 [Suspect]
     Route: 062
     Dates: start: 20110628, end: 20110629
  4. DURAGESIC-100 [Suspect]
     Indication: OROPHARYNGEAL PAIN
     Route: 062

REACTIONS (5)
  - INAPPROPRIATE SCHEDULE OF DRUG ADMINISTRATION [None]
  - DIZZINESS [None]
  - VOMITING [None]
  - DECREASED APPETITE [None]
  - DISABILITY [None]
